FAERS Safety Report 5356896-2 (Version None)
Quarter: 2007Q2

REPORT INFORMATION
  Report Type: 
  Country: None (occurrence: None)
  Receive Date: 20070530
  Receipt Date: 20070314
  Transmission Date: 20071010
  Serious: Yes (Other)
  Sender: FDA-Public Use
  Company Number: US200701004349

PATIENT
  Age: 83 Year
  Sex: Female
  Weight: 45.4 kg

DRUGS (7)
  1. ZYPREXA [Suspect]
     Indication: BIPOLAR DISORDER
     Dosage: 5 MG
     Dates: start: 20020510, end: 20021105
  2. ZYPREXA [Suspect]
     Indication: BIPOLAR DISORDER
     Dosage: 5 MG
     Dates: start: 19960101, end: 20060101
  3. ZYPREXA [Suspect]
     Indication: BIPOLAR DISORDER
     Dosage: 5 MG
     Dates: start: 20030124
  4. ZYPREXA [Suspect]
     Indication: BIPOLAR DISORDER
     Dosage: 5 MG
     Dates: start: 20050128
  5. QUETIAPINE FUMARATE [Concomitant]
  6. CITALOPRAM HYDROBROMIDE [Concomitant]
  7. MIRTAZAPINE [Concomitant]

REACTIONS (3)
  - DIABETES MELLITUS [None]
  - HYPERGLYCAEMIA [None]
  - PANCREATITIS [None]
